FAERS Safety Report 23849506 (Version 2)
Quarter: 2024Q2

REPORT INFORMATION
  Report Type: Report from Study
  Country: US (occurrence: US)
  Receive Date: 20240513
  Receipt Date: 20240515
  Transmission Date: 20240716
  Serious: No
  Sender: FDA-Public Use
  Company Number: US-TAIHOP-2024-004743

PATIENT
  Age: 56 Year
  Sex: Female
  Weight: 97.16 kg

DRUGS (1)
  1. LONSURF [Suspect]
     Active Substance: TIPIRACIL HYDROCHLORIDE\TRIFLURIDINE
     Indication: Colon cancer
     Dosage: CYCLE 1
     Route: 048
     Dates: start: 20240410

REACTIONS (5)
  - Stress [Unknown]
  - Product distribution issue [Unknown]
  - Therapy interrupted [Unknown]
  - White blood cell count decreased [Unknown]
  - Constipation [Unknown]
